FAERS Safety Report 18528231 (Version 1)
Quarter: 2020Q4

REPORT INFORMATION
  Report Type: Spontaneous
  Country: US (occurrence: US)
  Receive Date: 20201120
  Receipt Date: 20201120
  Transmission Date: 20210114
  Serious: No
  Sender: FDA-Public Use
  Company Number: US-ELI_LILLY_AND_COMPANY-US202011005763

PATIENT
  Age: 48 Year
  Sex: Female

DRUGS (1)
  1. EMGALITY [Suspect]
     Active Substance: GALCANEZUMAB-GNLM
     Indication: MIGRAINE
     Dosage: 240 MG, UNKNOWN
     Route: 065
     Dates: start: 20201109, end: 20201109

REACTIONS (9)
  - Fatigue [Unknown]
  - Dizziness [Unknown]
  - Neck pain [Unknown]
  - Nausea [Unknown]
  - Illness [Unknown]
  - Head discomfort [Unknown]
  - Chills [Unknown]
  - Injection site pain [Unknown]
  - Eye pain [Unknown]

NARRATIVE: CASE EVENT DATE: 20201109
